FAERS Safety Report 10023900 (Version 2)
Quarter: 2014Q1

REPORT INFORMATION
  Report Type: Spontaneous
  Country: US (occurrence: None)
  Receive Date: 20140122
  Receipt Date: 20140123
  Transmission Date: 20141002
  Serious: Yes (Hospitalization, Other)
  Sender: FDA-Public Use
  Company Number: ADR-2010-8693

PATIENT
  Sex: Male

DRUGS (1)
  1. LIORESAL [Suspect]
     Indication: MUSCLE SPASTICITY
     Dosage: LESS THAN 2000MCG/DAY

REACTIONS (5)
  - Drug withdrawal syndrome [None]
  - Infection [None]
  - Medical device complication [None]
  - Blood creatine phosphokinase increased [None]
  - Muscle spasticity [None]
